FAERS Safety Report 24840525 (Version 1)
Quarter: 2025Q1

REPORT INFORMATION
  Report Type: Spontaneous
  Country: JP (occurrence: JP)
  Receive Date: 20250114
  Receipt Date: 20250114
  Transmission Date: 20250408
  Serious: Yes (Death)
  Sender: CHEPLAPHARM
  Company Number: JP-CLGN-JP-CLI-2025-000005

PATIENT
  Age: 64 Year
  Sex: Female

DRUGS (5)
  1. HYDROXYUREA [Suspect]
     Active Substance: HYDROXYUREA
     Indication: Acute myelomonocytic leukaemia
  2. COLCHICINE [Suspect]
     Active Substance: COLCHICINE
     Indication: Pericarditis
  3. ASPIRIN [Suspect]
     Active Substance: ASPIRIN
     Indication: Pericarditis
  4. PREDNISOLONE [Suspect]
     Active Substance: PREDNISOLONE
     Indication: Pericarditis
  5. AZACITIDINE [Suspect]
     Active Substance: AZACITIDINE
     Indication: Acute myelomonocytic leukaemia

REACTIONS (4)
  - Cerebral haemorrhage [Fatal]
  - Brain herniation [Fatal]
  - Disseminated intravascular coagulation [Fatal]
  - Off label use [Unknown]
